FAERS Safety Report 8267941-9 (Version None)
Quarter: 2012Q2

REPORT INFORMATION
  Report Type: 
  Country: None (occurrence: None)
  Receive Date: 20120409
  Receipt Date: 20120328
  Transmission Date: 20120825
  Serious: Yes (Other)
  Sender: FDA-Public Use
  Company Number: PHHY2011JP46242

PATIENT
  Sex: Male
  Weight: 70 kg

DRUGS (14)
  1. EPOETIN BETA [Suspect]
     Indication: NEPHROGENIC ANAEMIA
     Dosage: 1200 IU, DAILY
     Dates: start: 20090501, end: 20091110
  2. LANSOPRAZOLE [Concomitant]
     Indication: PROPHYLAXIS
     Dosage: 15 MG, UNK
     Route: 048
     Dates: start: 20100312, end: 20100831
  3. ATELEC [Concomitant]
     Indication: HYPERTENSION
     Dosage: 20 MG, UNK
     Route: 048
     Dates: start: 20100203, end: 20100428
  4. CARVEDILOL [Concomitant]
     Indication: HYPERTENSION
     Dosage: 10 MG, UNK
     Route: 048
     Dates: start: 20090501
  5. DOXAZOSIN MESYLATE [Concomitant]
     Dosage: 2 MG, UNK
     Route: 048
  6. PERINDOPRIL ERBUMINE [Concomitant]
     Dosage: 8 MG, UNK
     Route: 048
     Dates: start: 20090501
  7. NITRODERM [Concomitant]
     Dosage: 25 MG, UNK
     Route: 062
     Dates: start: 20091209
  8. DOXAZOSIN MESYLATE [Concomitant]
     Indication: HYPERTENSION
     Dosage: 1 MG, UNK
     Route: 048
     Dates: start: 20091209
  9. ALISKIREN [Suspect]
     Dosage: 150 MG, QD
     Route: 048
     Dates: start: 20100320, end: 20100621
  10. EPOETIN BETA [Suspect]
     Dosage: 9000 IU, DAILY
     Dates: start: 20091111
  11. DOXAZOSIN MESYLATE [Concomitant]
     Dosage: 8 MG, UNK
     Route: 048
  12. ALISKIREN [Suspect]
     Dosage: 300 MG, QD
     Route: 048
     Dates: start: 20100622, end: 20101017
  13. PERINDOPRIL ERBUMINE [Concomitant]
     Dosage: 4 MG, UNK
  14. LIPITOR [Concomitant]
     Dosage: 10 MG, UNK
     Route: 048
     Dates: start: 20090513

REACTIONS (2)
  - RENAL FAILURE CHRONIC [None]
  - BLOOD PRESSURE INCREASED [None]
